FAERS Safety Report 4311915-7 (Version None)
Quarter: 2004Q1

REPORT INFORMATION
  Report Type: 
  Country: None (occurrence: None)
  Receive Date: 20040305
  Receipt Date: 20040203
  Transmission Date: 20041129
  Serious: Yes (Life-Threatening, Hospitalization, Other)
  Sender: FDA-Public Use
  Company Number: PHNU2004DE00778

PATIENT
  Age: 71 Year
  Sex: Female
  Weight: 90 kg

DRUGS (7)
  1. GLEEVEC [Suspect]
     Indication: CHRONIC MYELOID LEUKAEMIA
     Dosage: 600MG/DAY
     Route: 048
     Dates: start: 20040126, end: 20040203
  2. METFORMIN [Suspect]
     Indication: DIABETES MELLITUS
     Dosage: 2550MG/DAY
     Route: 048
     Dates: start: 19860101, end: 20040203
  3. MOXONIDINE [Concomitant]
     Route: 048
  4. BEZAFIBRATE [Concomitant]
     Indication: HYPERLIPIDAEMIA
     Dosage: 2MG/DAY
     Route: 048
     Dates: end: 20040203
  5. BLOPRESS PLUS [Concomitant]
     Indication: CARDIAC FAILURE
     Dosage: 16MG/DAY
     Route: 048
     Dates: start: 20020701, end: 20040203
  6. ACETYLSALICYLIC ACID [Concomitant]
     Route: 065
  7. EUTHYROX [Concomitant]
     Indication: HYPOTHYROIDISM POSTOPERATIVE
     Dosage: 100A?G/DAY
     Route: 048
     Dates: start: 19850101, end: 20040203

REACTIONS (29)
  - ALANINE AMINOTRANSFERASE INCREASED [None]
  - ASPARTATE AMINOTRANSFERASE INCREASED [None]
  - BLOOD ALKALINE PHOSPHATASE INCREASED [None]
  - BLOOD AMYLASE INCREASED [None]
  - BLOOD CREATINE PHOSPHOKINASE INCREASED [None]
  - BLOOD CREATININE INCREASED [None]
  - BLOOD ELECTROLYTES ABNORMAL [None]
  - BLOOD GASES ABNORMAL [None]
  - BLOOD GLUCOSE INCREASED [None]
  - BLOOD LACTATE DEHYDROGENASE INCREASED [None]
  - BLOOD PH DECREASED [None]
  - BLOOD UREA INCREASED [None]
  - C-REACTIVE PROTEIN INCREASED [None]
  - CEREBRAL ISCHAEMIA [None]
  - DIALYSIS [None]
  - DIARRHOEA [None]
  - HAEMATOCRIT DECREASED [None]
  - HAEMOGLOBIN DECREASED [None]
  - LACTIC ACIDOSIS [None]
  - LEUKOCYTOSIS [None]
  - LIPASE INCREASED [None]
  - MYOGLOBIN BLOOD INCREASED [None]
  - NAUSEA [None]
  - PLATELET COUNT INCREASED [None]
  - RED BLOOD CELL COUNT DECREASED [None]
  - RENAL FAILURE ACUTE [None]
  - RHABDOMYOLYSIS [None]
  - SOMNOLENCE [None]
  - VASCULAR OCCLUSION [None]
